FAERS Safety Report 6437061-4 (Version None)
Quarter: 2009Q4

REPORT INFORMATION
  Report Type: 
  Country: None (occurrence: None)
  Receive Date: 20091112
  Receipt Date: 20091104
  Transmission Date: 20100525
  Serious: Yes (Other)
  Sender: FDA-Public Use
  Company Number: DE-JNJFOC-20091101040

PATIENT
  Age: 4 Decade
  Sex: Female

DRUGS (2)
  1. TOPAMAX MIGRAENE [Suspect]
     Route: 048
  2. TOPAMAX MIGRAENE [Suspect]
     Indication: MIGRAINE PROPHYLAXIS
     Route: 048

REACTIONS (3)
  - FATIGUE [None]
  - MUSCLE SPASTICITY [None]
  - SOMNOLENCE [None]
